FAERS Safety Report 5481006-0 (Version None)
Quarter: 2007Q4

REPORT INFORMATION
  Report Type: 
  Country: None (occurrence: None)
  Receive Date: 20071004
  Receipt Date: 20070922
  Transmission Date: 20080405
  Serious: No
  Sender: FDA-Public Use
  Company Number: TCI2007A04950

PATIENT
  Age: 67 Year
  Sex: Male

DRUGS (5)
  1. ACTOS [Suspect]
     Indication: DIABETES MELLITUS
     Dosage: 30 MG (30 MG,  1 IN 1 D) PER ORAL
     Route: 048
     Dates: start: 20030912, end: 20070604
  2. TENORMIN [Suspect]
     Indication: HYPERTENSION
     Dosage: 50 MG (25 MG, 2 IN 1 D); PER ORAL
     Route: 048
     Dates: start: 20020327, end: 20070604
  3. BLOPRESS TABLETS 4 (CANDESARTAN CILEXETIL) [Concomitant]
  4. METFORMIN HYDROCHLORIDE [Concomitant]
  5. ADALAT [Concomitant]

REACTIONS (5)
  - ATRIAL FIBRILLATION [None]
  - BRAIN NATRIURETIC PEPTIDE INCREASED [None]
  - CARDIAC FAILURE [None]
  - GENERALISED OEDEMA [None]
  - PALPITATIONS [None]
